FAERS Safety Report 9752946 (Version 3)
Quarter: 2014Q2

REPORT INFORMATION
  Report Type: Spontaneous
  Country: US (occurrence: None)
  Receive Date: 20131211
  Receipt Date: 20140430
  Transmission Date: 20141212
  Serious: Yes (Hospitalization, Disabling)
  Sender: FDA-Public Use
  Company Number: 201311065

PATIENT
  Age: 57 Year
  Sex: Male
  Weight: 81.65 kg

DRUGS (1)
  1. XIAFLEX [Suspect]
     Indication: DUPUYTREN^S CONTRACTURE
     Dosage: 1 IN 1 D, INTRALESIONAL
     Dates: start: 20131111, end: 20131111

REACTIONS (14)
  - Injection site swelling [None]
  - Injection site vesicles [None]
  - Pain in extremity [None]
  - Necrosis [None]
  - Wrong technique in drug usage process [None]
  - Immune system disorder [None]
  - Post procedural complication [None]
  - Impaired healing [None]
  - Staphylococcal infection [None]
  - Diarrhoea [None]
  - Limb discomfort [None]
  - Peripheral vascular disorder [None]
  - Impaired work ability [None]
  - Temperature intolerance [None]
